FAERS Safety Report 12800930 (Version 1)
Quarter: 2016Q4

REPORT INFORMATION
  Report Type: Spontaneous
  Country: US (occurrence: US)
  Receive Date: 20161002
  Receipt Date: 20161002
  Transmission Date: 20170207
  Serious: Yes (Other)
  Sender: FDA-Public Use
  Company Number: US-JNJFOC-20160712642

PATIENT
  Sex: Male
  Weight: 111.13 kg

DRUGS (7)
  1. LEVAQUIN [Suspect]
     Active Substance: LEVOFLOXACIN
     Indication: BRONCHITIS
     Route: 048
     Dates: start: 20070119, end: 20070126
  2. AZITHROMYCIN ANHYDROUS. [Concomitant]
     Active Substance: AZITHROMYCIN ANHYDROUS
     Indication: BRONCHITIS
     Route: 065
     Dates: start: 2006, end: 2016
  3. CIPROFLOXACIN. [Suspect]
     Active Substance: CIPROFLOXACIN
     Indication: BRONCHITIS
     Route: 065
     Dates: start: 20080319, end: 20080329
  4. AMOXICILLIN. [Concomitant]
     Active Substance: AMOXICILLIN
     Indication: BRONCHITIS
     Route: 065
     Dates: start: 2006
  5. LEVAQUIN [Suspect]
     Active Substance: LEVOFLOXACIN
     Indication: BRONCHITIS
     Route: 048
     Dates: start: 20100412, end: 20100418
  6. SAW PALMETTO [Concomitant]
     Active Substance: SAW PALMETTO
     Indication: PROPHYLAXIS
     Route: 065
     Dates: start: 1996
  7. PREDNISONE. [Concomitant]
     Active Substance: PREDNISONE
     Indication: BRONCHITIS
     Route: 065
     Dates: start: 2006

REACTIONS (3)
  - Neuropathy peripheral [Not Recovered/Not Resolved]
  - Abdominal discomfort [Unknown]
  - Swelling [Unknown]

NARRATIVE: CASE EVENT DATE: 2007
